FAERS Safety Report 6611515-X (Version None)
Quarter: 2010Q1

REPORT INFORMATION
  Report Type: 
  Country: None (occurrence: None)
  Receive Date: 20100303
  Receipt Date: 20100218
  Transmission Date: 20100710
  Serious: Yes (Other)
  Sender: FDA-Public Use
  Company Number: PHHY2009BR21376

PATIENT
  Age: 67 Year
  Sex: Male
  Weight: 74 kg

DRUGS (2)
  1. FORASEQ [Suspect]
     Indication: EMPHYSEMA
     Dosage: 1 INHALATION OF EACH ACTIVE INGREDIENT, BID
     Dates: start: 20081001
  2. PURAN T4 [Concomitant]
     Indication: THYROID DISORDER
     Dosage: 112 UG, QD
     Route: 048

REACTIONS (7)
  - CONDITION AGGRAVATED [None]
  - COUGH [None]
  - DRUG INEFFECTIVE [None]
  - INCREASED UPPER AIRWAY SECRETION [None]
  - MALAISE [None]
  - NAUSEA [None]
  - THYROIDECTOMY [None]
